FAERS Safety Report 20331853 (Version 3)
Quarter: 2022Q1

REPORT INFORMATION
  Report Type: Report from Study
  Country: US (occurrence: US)
  Receive Date: 20220113
  Receipt Date: 20220124
  Transmission Date: 20220423
  Serious: No
  Sender: FDA-Public Use
  Company Number: US-NOVARTISTESTPH-NVSC2022US006940

PATIENT
  Age: 77 Year
  Sex: Female

DRUGS (1)
  1. XIIDRA [Suspect]
     Active Substance: LIFITEGRAST
     Indication: Dry eye
     Dosage: 1 DRP, BID
     Route: 047
     Dates: start: 20210512, end: 20211215

REACTIONS (5)
  - Sinusitis [Recovering/Resolving]
  - Dry mouth [Unknown]
  - Nasal dryness [Unknown]
  - Erythema [Recovering/Resolving]
  - Swelling [Recovering/Resolving]

NARRATIVE: CASE EVENT DATE: 20211212
